FAERS Safety Report 9848556 (Version 1)
Quarter: 2013Q4

REPORT INFORMATION
  Report Type: Spontaneous
  Country: US (occurrence: None)
  Receive Date: 20131226
  Receipt Date: 20131226
  Transmission Date: 20140711
  Serious: Yes (Life-Threatening)
  Sender: FDA-Public Use
  Company Number: PHEH2012US011665

PATIENT
  Age: 81 Year
  Sex: Female

DRUGS (3)
  1. BENAZEPRIL HYDROCHLORIDE [Suspect]
     Dosage: 10 MG AMLO AND 20 MG BENA
  2. CALCIUM CHANNEL BLOCKERS [Suspect]
  3. ANGIOTENSIN II ANTAGONISTS [Suspect]

REACTIONS (3)
  - Blood pressure increased [None]
  - Syncope [None]
  - Arrhythmia [None]
